FAERS Safety Report 9526367 (Version 1)
Quarter: 2013Q1

REPORT INFORMATION
  Report Type: Spontaneous
  Country: US (occurrence: None)
  Receive Date: 20130305
  Receipt Date: 20130305
  Transmission Date: 20140127
  Serious: Yes (Other)
  Sender: FDA-Public Use
  Company Number: 163-21880-12030926

PATIENT
  Age: 64 Year
  Sex: Male

DRUGS (18)
  1. REVLIMID (LENALIDOMIDE) (25 MILLIGRAM, CAPSULES) [Suspect]
     Indication: PLASMA CELL MYELOMA
     Route: 048
     Dates: start: 20111122, end: 20120307
  2. FOLIC ACID (FOLIC ACID) [Concomitant]
  3. METOPROLOL (METOPROLOL) [Concomitant]
  4. FLUCONAZOLE (FLUCONAZOLE) [Concomitant]
  5. ACYCLOVIR (ACICLOVIR) (ACICLOVIR) [Concomitant]
  6. OXYCODONE (OXYCODONE) [Concomitant]
  7. LIDODERM (LIIDOCAINE) [Concomitant]
  8. PAROXETINE (PAROXETINE) [Concomitant]
  9. ALPRAZOLAM (ALPRAZOLAM) [Concomitant]
  10. IMDUR (ISOSORBIDE MONONITRATE) [Concomitant]
  11. CALCITONIN (CALCITONIN) [Concomitant]
  12. OXYCONTIN (OXYCODONE HYDROCHLORIDE) [Concomitant]
  13. PREDNISONE (PREDNISONE) [Concomitant]
  14. PROAIR (FLUTICASONE PROPIONATE) [Concomitant]
  15. NOVOLOG (INSULIN ASPART) [Concomitant]
  16. ALBUTEROL (SALBUTAMOL) [Concomitant]
  17. MEGACE (MEGESTROL ACETATE) [Concomitant]
  18. SEROQUEL (QUETIAPINE FUMARATE) [Concomitant]

REACTIONS (3)
  - Platelet count decreased [None]
  - Neutrophil count decreased [None]
  - Constipation [None]
